FAERS Safety Report 18651247 (Version 4)
Quarter: 2025Q3

REPORT INFORMATION
  Report Type: Spontaneous
  Country: EU (occurrence: EU)
  Receive Date: 20201222
  Receipt Date: 20250915
  Transmission Date: 20251021
  Serious: Yes (Death, Other)
  Sender: Steriscience PTE
  Company Number: EU-009507513-2011FRA012669

PATIENT
  Age: 75 Year
  Sex: Male

DRUGS (58)
  1. VANCOMYCIN [Suspect]
     Active Substance: VANCOMYCIN
     Indication: Bacteraemia
     Route: 065
     Dates: start: 201803, end: 201803
  2. VANCOMYCIN [Suspect]
     Active Substance: VANCOMYCIN
     Indication: Peritonitis
     Route: 065
     Dates: start: 201801, end: 201802
  3. VANCOMYCIN [Suspect]
     Active Substance: VANCOMYCIN
     Indication: Pneumonia
  4. VANCOMYCIN [Suspect]
     Active Substance: VANCOMYCIN
     Indication: Sepsis
  5. PIPERACILLIN AND TAZOBACTAM [Suspect]
     Active Substance: PIPERACILLIN SODIUM\TAZOBACTAM SODIUM
     Indication: Enterobacter infection
     Dates: start: 2018
  6. PIPERACILLIN AND TAZOBACTAM [Suspect]
     Active Substance: PIPERACILLIN SODIUM\TAZOBACTAM SODIUM
     Indication: Staphylococcal infection
     Route: 065
     Dates: start: 201802, end: 201802
  7. PIPERACILLIN AND TAZOBACTAM [Suspect]
     Active Substance: PIPERACILLIN SODIUM\TAZOBACTAM SODIUM
     Indication: Peritonitis
  8. PIPERACILLIN AND TAZOBACTAM [Suspect]
     Active Substance: PIPERACILLIN SODIUM\TAZOBACTAM SODIUM
     Indication: Pneumonia
  9. PIPERACILLIN AND TAZOBACTAM [Suspect]
     Active Substance: PIPERACILLIN SODIUM\TAZOBACTAM SODIUM
     Indication: Sepsis
  10. PIPERACILLIN AND TAZOBACTAM [Suspect]
     Active Substance: PIPERACILLIN SODIUM\TAZOBACTAM SODIUM
     Indication: Bacteraemia
  11. LEVOFLOXACIN [Suspect]
     Active Substance: LEVOFLOXACIN
     Indication: Bacteraemia
     Route: 065
     Dates: start: 201803, end: 201803
  12. LEVOFLOXACIN [Suspect]
     Active Substance: LEVOFLOXACIN
     Indication: Pneumonia
  13. LEVOFLOXACIN [Suspect]
     Active Substance: LEVOFLOXACIN
     Indication: Peritonitis
  14. LEVOFLOXACIN [Suspect]
     Active Substance: LEVOFLOXACIN
     Indication: Sepsis
  15. ERYTHROMYCIN STEARATE [Suspect]
     Active Substance: ERYTHROMYCIN STEARATE
     Indication: Sepsis
     Route: 065
     Dates: start: 201802, end: 201802
  16. ERYTHROMYCIN STEARATE [Suspect]
     Active Substance: ERYTHROMYCIN STEARATE
     Indication: Pneumonia
     Route: 065
     Dates: start: 201805, end: 201805
  17. ERYTHROMYCIN STEARATE [Suspect]
     Active Substance: ERYTHROMYCIN STEARATE
     Indication: Bacteraemia
  18. ERYTHROMYCIN STEARATE [Suspect]
     Active Substance: ERYTHROMYCIN STEARATE
     Indication: Peritonitis
  19. AMIKACIN [Suspect]
     Active Substance: AMIKACIN
     Indication: Staphylococcal infection
     Route: 065
     Dates: start: 201803, end: 201803
  20. AMIKACIN [Suspect]
     Active Substance: AMIKACIN
     Indication: Enterobacter infection
     Dates: start: 2018
  21. AMIKACIN [Suspect]
     Active Substance: AMIKACIN
     Indication: Sepsis
     Route: 065
     Dates: start: 201804, end: 201804
  22. AMIKACIN [Suspect]
     Active Substance: AMIKACIN
     Indication: Bacteraemia
     Route: 065
     Dates: start: 201802, end: 201802
  23. AMIKACIN [Suspect]
     Active Substance: AMIKACIN
     Indication: Peritonitis
  24. AMIKACIN [Suspect]
     Active Substance: AMIKACIN
     Indication: Pneumonia
  25. MEROPENEM [Suspect]
     Active Substance: MEROPENEM
     Indication: Enterobacter infection
     Dates: start: 2018
  26. MEROPENEM [Suspect]
     Active Substance: MEROPENEM
     Indication: Staphylococcal infection
     Route: 065
     Dates: start: 201803, end: 201803
  27. MEROPENEM [Suspect]
     Active Substance: MEROPENEM
     Indication: Pneumonia
     Route: 065
     Dates: start: 201804, end: 201805
  28. MEROPENEM [Suspect]
     Active Substance: MEROPENEM
     Indication: Peritonitis
     Route: 065
     Dates: start: 201803, end: 201804
  29. MEROPENEM [Suspect]
     Active Substance: MEROPENEM
     Indication: Bacteraemia
  30. MEROPENEM [Suspect]
     Active Substance: MEROPENEM
     Indication: Sepsis
  31. CILASTATIN SODIUM\IMIPENEM [Suspect]
     Active Substance: CILASTATIN SODIUM\IMIPENEM
     Indication: Staphylococcal infection
     Route: 065
  32. CILASTATIN SODIUM\IMIPENEM [Suspect]
     Active Substance: CILASTATIN SODIUM\IMIPENEM
     Indication: Enterobacter infection
     Route: 065
     Dates: start: 2018
  33. LINEZOLID [Suspect]
     Active Substance: LINEZOLID
     Indication: Sepsis
     Route: 065
     Dates: start: 201802, end: 201802
  34. LINEZOLID [Suspect]
     Active Substance: LINEZOLID
     Indication: Bacteraemia
     Route: 065
     Dates: start: 201805, end: 201805
  35. LINEZOLID [Suspect]
     Active Substance: LINEZOLID
     Indication: Peritonitis
     Route: 065
     Dates: start: 201804, end: 201804
  36. LINEZOLID [Suspect]
     Active Substance: LINEZOLID
     Indication: Pneumonia
  37. AVIBACTAM SODIUM\CEFTAZIDIME [Suspect]
     Active Substance: AVIBACTAM SODIUM\CEFTAZIDIME
     Indication: Staphylococcal infection
     Route: 065
     Dates: start: 201805, end: 201805
  38. AVIBACTAM SODIUM\CEFTAZIDIME [Suspect]
     Active Substance: AVIBACTAM SODIUM\CEFTAZIDIME
     Indication: Enterobacter infection
     Dates: start: 2018
  39. AVIBACTAM SODIUM\CEFTAZIDIME [Suspect]
     Active Substance: AVIBACTAM SODIUM\CEFTAZIDIME
     Indication: Bacteraemia
  40. AVIBACTAM SODIUM\CEFTAZIDIME [Suspect]
     Active Substance: AVIBACTAM SODIUM\CEFTAZIDIME
     Indication: Sepsis
  41. AVIBACTAM SODIUM\CEFTAZIDIME [Suspect]
     Active Substance: AVIBACTAM SODIUM\CEFTAZIDIME
     Indication: Peritonitis
  42. AVIBACTAM SODIUM\CEFTAZIDIME [Suspect]
     Active Substance: AVIBACTAM SODIUM\CEFTAZIDIME
     Indication: Pneumonia
  43. IMIPENEM [Suspect]
     Active Substance: IMIPENEM
     Indication: Sepsis
     Route: 065
     Dates: start: 201802, end: 201802
  44. IMIPENEM [Suspect]
     Active Substance: IMIPENEM
     Indication: Peritonitis
  45. IMIPENEM [Suspect]
     Active Substance: IMIPENEM
     Indication: Pneumonia
  46. IMIPENEM [Suspect]
     Active Substance: IMIPENEM
     Indication: Bacteraemia
  47. CEFTAROLINE [Suspect]
     Active Substance: CEFTAROLINE
     Indication: Sepsis
     Route: 065
     Dates: start: 201803, end: 201803
  48. CEFTAROLINE [Suspect]
     Active Substance: CEFTAROLINE
     Indication: Bacteraemia
  49. CEFTAROLINE [Suspect]
     Active Substance: CEFTAROLINE
     Indication: Peritonitis
  50. CEFTAROLINE [Suspect]
     Active Substance: CEFTAROLINE
     Indication: Pneumonia
  51. DAPTOMYCIN [Suspect]
     Active Substance: DAPTOMYCIN
     Indication: Pneumonia
     Route: 065
     Dates: start: 201803, end: 201803
  52. DAPTOMYCIN [Suspect]
     Active Substance: DAPTOMYCIN
     Indication: Bacteraemia
     Route: 065
     Dates: start: 201804, end: 201804
  53. DAPTOMYCIN [Suspect]
     Active Substance: DAPTOMYCIN
     Indication: Sepsis
  54. DAPTOMYCIN [Suspect]
     Active Substance: DAPTOMYCIN
     Indication: Peritonitis
  55. COTRIMOXAZOLE [Suspect]
     Active Substance: SULFAMETHOXAZOLE\TRIMETHOPRIM
     Indication: Peritonitis
     Route: 065
     Dates: start: 201803, end: 201804
  56. COTRIMOXAZOLE [Suspect]
     Active Substance: SULFAMETHOXAZOLE\TRIMETHOPRIM
     Indication: Pneumonia
  57. COTRIMOXAZOLE [Suspect]
     Active Substance: SULFAMETHOXAZOLE\TRIMETHOPRIM
     Indication: Bacteraemia
  58. COTRIMOXAZOLE [Suspect]
     Active Substance: SULFAMETHOXAZOLE\TRIMETHOPRIM
     Indication: Sepsis

REACTIONS (3)
  - Treatment failure [Fatal]
  - Pathogen resistance [Unknown]
  - Off label use [None]

NARRATIVE: CASE EVENT DATE: 20180101
